FAERS Safety Report 8237636-6 (Version None)
Quarter: 2012Q1

REPORT INFORMATION
  Report Type: 
  Country: None (occurrence: None)
  Receive Date: 20120309
  Receipt Date: 20110729
  Transmission Date: 20120608
  Serious: Yes (Hospitalization)
  Sender: FDA-Public Use
  Company Number: PHHY2011US69240

PATIENT
  Age: 57 Year
  Sex: Female
  Weight: 121 kg

DRUGS (11)
  1. INTERFERON BETA-1A (INTERFERON BETA-1A) INJECTION [Concomitant]
  2. NEXIUM (ESOMEPRAZOLE MAGNESIUM) 02/07/2009 TO UNK [Concomitant]
  3. BUSPAR (BUSPIRONE HYDROCHLORIDE) 01/01/2000 TO UNK [Concomitant]
  4. EXTAVIA [Suspect]
     Dosage: UNK UKN, UNK, SUBCUTANEOUS
     Route: 058
  5. CLONEX (CLONAZEPAM) 05/10/1989 TO UNK [Concomitant]
  6. AMITRIPTYLINE (AMITRIPTYLINE) 12/03/2008 TO UNK [Concomitant]
  7. BACLOFEN (BACLOFEN) 03/10/2008 TO UNK [Concomitant]
  8. CALAN (VERAPAMIL HYDROCHLORIDE) 01/01/2009 TO UNK [Concomitant]
  9. GLATIRAMER ACETATE (GLATIRAMER ACETATE) [Concomitant]
  10. CADEX (DOXAZOSIN MESILATE) 02/07/2009 TO UNK [Concomitant]
  11. ALBUTEROL [Concomitant]

REACTIONS (1)
  - MULTIPLE SCLEROSIS [None]
